FAERS Safety Report 5904956-7 (Version None)
Quarter: 2008Q4

REPORT INFORMATION
  Report Type: 
  Country: None (occurrence: None)
  Receive Date: 20081001
  Receipt Date: 20080930
  Transmission Date: 20090506
  Serious: Yes (Death)
  Sender: FDA-Public Use
  Company Number: PT-BRISTOL-MYERS SQUIBB COMPANY-13662804

PATIENT
  Age: 58 Year
  Sex: Male
  Weight: 54 kg

DRUGS (2)
  1. CARBOPLATIN [Suspect]
     Indication: NON-SMALL CELL LUNG CANCER
     Dosage: INITIATED ON 16OCT06.
     Route: 042
     Dates: start: 20070108, end: 20070108
  2. PACLITAXEL [Suspect]
     Indication: NON-SMALL CELL LUNG CANCER
     Dosage: INITIATED ON 16OCT06.
     Route: 042
     Dates: start: 20070108, end: 20070108

REACTIONS (1)
  - DEATH [None]
